FAERS Safety Report 7591061-X (Version None)
Quarter: 2011Q3

REPORT INFORMATION
  Report Type: 
  Country: None (occurrence: None)
  Receive Date: 20110705
  Receipt Date: 20110624
  Transmission Date: 20111222
  Serious: Yes (Hospitalization)
  Sender: FDA-Public Use
  Company Number: CN-ASTRAZENECA-2011SE38093

PATIENT
  Age: 62 Year
  Sex: Male

DRUGS (3)
  1. NEXIUM [Suspect]
     Indication: PEPTIC ULCER HAEMORRHAGE
     Route: 042
     Dates: start: 20110610, end: 20110614
  2. TRANEXAMIC ACID [Concomitant]
     Indication: PEPTIC ULCER HAEMORRHAGE
  3. TROMBIN [Concomitant]
     Indication: PEPTIC ULCER HAEMORRHAGE

REACTIONS (2)
  - DIARRHOEA [None]
  - INTENTIONAL OVERDOSE [None]
